FAERS Safety Report 8268881-1 (Version None)
Quarter: 2012Q1

REPORT INFORMATION
  Report Type: 
  Country: None (occurrence: None)
  Receive Date: 20120327
  Receipt Date: 20091216
  Transmission Date: 20120608
  Serious: Yes (Other)
  Sender: FDA-Public Use
  Company Number: PHHY2009US56867

PATIENT
  Age: 60 Year
  Sex: Female

DRUGS (3)
  1. GLEEVEC [Suspect]
     Indication: CHRONIC MYELOID LEUKAEMIA
     Dosage: 400 MG,QD,ORAL
     Route: 048
     Dates: start: 20091030, end: 20091216
  2. SYNTHROID [Concomitant]
  3. LASIX [Concomitant]

REACTIONS (4)
  - PLEURAL EFFUSION [None]
  - RETINAL HAEMORRHAGE [None]
  - RASH [None]
  - OEDEMA PERIPHERAL [None]
